FAERS Safety Report 22182100 (Version 1)
Quarter: 2023Q2

REPORT INFORMATION
  Report Type: Spontaneous
  Country: US (occurrence: None)
  Receive Date: 20230405
  Receipt Date: 20230405
  Transmission Date: 20230722
  Serious: Yes (Other)
  Sender: FDA-Public Use
  Company Number: None

PATIENT
  Sex: Female

DRUGS (3)
  1. VERZENIO [Suspect]
     Active Substance: ABEMACICLIB
     Dosage: FREQUENCY : TWICE A DAY;?
     Route: 048
     Dates: start: 202303
  2. LOPERAMIDE [Concomitant]
     Active Substance: LOPERAMIDE
  3. TYLENOL [Concomitant]
     Active Substance: ACETAMINOPHEN

REACTIONS (7)
  - Dyspnoea [None]
  - Fatigue [None]
  - Hypoaesthesia [None]
  - Skin discolouration [None]
  - Diarrhoea [None]
  - Abdominal distension [None]
  - Vision blurred [None]
